FAERS Safety Report 14551463 (Version 1)
Quarter: 2018Q1

REPORT INFORMATION
  Report Type: Spontaneous
  Country: RU (occurrence: RU)
  Receive Date: 20180220
  Receipt Date: 20180220
  Transmission Date: 20180509
  Serious: Yes (Death)
  Sender: FDA-Public Use
  Company Number: RU-ASTRAZENECA-2017SF14711

PATIENT
  Age: 76 Year
  Sex: Female
  Weight: 45 kg

DRUGS (5)
  1. BRILINTA [Suspect]
     Active Substance: TICAGRELOR
     Indication: MYOCARDIAL INFARCTION
     Route: 048
     Dates: start: 201706
  2. ASPIRIN. [Concomitant]
     Active Substance: ASPIRIN
  3. FERRUM [Concomitant]
     Active Substance: FERROUS FUMARATE
  4. LIPRIMAR [Concomitant]
     Active Substance: ATORVASTATIN CALCIUM
  5. INSULIN [Concomitant]
     Active Substance: INSULIN NOS

REACTIONS (2)
  - Death [Fatal]
  - Dyspnoea exertional [Not Recovered/Not Resolved]

NARRATIVE: CASE EVENT DATE: 201706
